FAERS Safety Report 6349037-6 (Version None)
Quarter: 2009Q3

REPORT INFORMATION
  Report Type: 
  Country: None (occurrence: None)
  Receive Date: 20090911
  Receipt Date: 20090902
  Transmission Date: 20100115
  Serious: Yes (Hospitalization)
  Sender: FDA-Public Use
  Company Number: DK-JNJFOC-20090900335

PATIENT
  Sex: Male
  Weight: 78.02 kg

DRUGS (9)
  1. IBUPROFEN [Suspect]
     Indication: BONE PAIN
     Route: 048
  2. STUDY MEDICATION [Suspect]
     Indication: PROSTATE CANCER
     Route: 048
  3. PREDNISOLONE [Concomitant]
     Indication: PROSTATE CANCER
     Route: 048
  4. OXYCONTIN [Concomitant]
     Indication: BONE PAIN
     Route: 048
  5. OXYNORM [Concomitant]
     Indication: BONE PAIN
     Route: 048
  6. FINASTERID [Concomitant]
     Indication: DYSURIA
     Route: 048
  7. LISINOPRIL [Concomitant]
     Indication: HYPERTENSION
     Route: 048
  8. CITALOPRAM HYDROBROMIDE [Concomitant]
     Indication: DEPRESSION
     Route: 048
  9. ASPIRIN [Concomitant]
     Indication: THROMBOSIS PROPHYLAXIS

REACTIONS (4)
  - DEHYDRATION [None]
  - DIZZINESS [None]
  - HYPOTENSION [None]
  - RENAL FUNCTION TEST ABNORMAL [None]
